FAERS Safety Report 23920958 (Version 1)
Quarter: 2024Q2

REPORT INFORMATION
  Report Type: Spontaneous
  Country: BE (occurrence: BE)
  Receive Date: 20240530
  Receipt Date: 20240530
  Transmission Date: 20240716
  Serious: Yes (Life-Threatening, Hospitalization, Other)
  Sender: FDA-Public Use
  Company Number: BE-BAYER-2024A077237

PATIENT
  Age: 47 Year
  Sex: Female
  Weight: 83 kg

DRUGS (5)
  1. XARELTO [Suspect]
     Active Substance: RIVAROXABAN
     Indication: Product used for unknown indication
     Dosage: 15 MG, BID
     Route: 048
  2. XARELTO [Suspect]
     Active Substance: RIVAROXABAN
     Dosage: 20 MG, QD
     Route: 048
  3. ETHINYL ESTRADIOL\LEVONORGESTREL [Suspect]
     Active Substance: ETHINYL ESTRADIOL\LEVONORGESTREL
     Indication: Menometrorrhagia
     Route: 048
  4. BECLOMETHASONE DIPROPIONATE [Concomitant]
     Active Substance: BECLOMETHASONE DIPROPIONATE
  5. DESLORATADINE [Concomitant]
     Active Substance: DESLORATADINE

REACTIONS (5)
  - Pulmonary embolism [Unknown]
  - Withdrawal bleed [Unknown]
  - Presyncope [Unknown]
  - Blood loss anaemia [Unknown]
  - Off label use [Unknown]
